FAERS Safety Report 10308897 (Version 1)
Quarter: 2014Q3

REPORT INFORMATION
  Report Type: Report from Study
  Country: BR (occurrence: BR)
  Receive Date: 20140716
  Receipt Date: 20140716
  Transmission Date: 20150326
  Serious: Yes (Other)
  Sender: FDA-Public Use
  Company Number: PHHY2014BR087242

PATIENT
  Sex: Female

DRUGS (1)
  1. DIOVAN [Suspect]
     Active Substance: VALSARTAN
     Dosage: 2 DF, QD (ONE IN THE MORNING, ONE AT NIGHT)

REACTIONS (4)
  - Limb discomfort [Unknown]
  - Abasia [Unknown]
  - Arthropathy [Unknown]
  - Pneumonia [Unknown]
